FAERS Safety Report 14367237 (Version 1)
Quarter: 2018Q1

REPORT INFORMATION
  Report Type: Spontaneous
  Country: US (occurrence: US)
  Receive Date: 20180109
  Receipt Date: 20180109
  Transmission Date: 20180509
  Serious: No
  Sender: FDA-Public Use
  Company Number: US-JNJFOC-20171204666

PATIENT
  Age: 1 Year
  Sex: Female
  Weight: 11.34 kg

DRUGS (4)
  1. CHILDRENS MOTRIN [Suspect]
     Active Substance: IBUPROFEN
     Indication: PYREXIA
     Dosage: EVERY 6-8 HOURS PRIOR TO BEDTIME
     Route: 048
     Dates: start: 20171118, end: 20171121
  2. CHILDRENS MOTRIN [Suspect]
     Active Substance: IBUPROFEN
     Indication: PAIN
     Dosage: EVERY 6-8 HOURS PRIOR TO BEDTIME
     Route: 048
     Dates: start: 20171118, end: 20171121
  3. CHILDRENS MOTRIN [Suspect]
     Active Substance: IBUPROFEN
     Indication: TEETHING
     Dosage: EVERY 6-8 HOURS PRIOR TO BEDTIME
     Route: 048
     Dates: start: 20171118, end: 20171121
  4. CEFTIN [Concomitant]
     Active Substance: CEFUROXIME AXETIL
     Indication: EAR INFECTION
     Route: 065
     Dates: start: 20171118

REACTIONS (6)
  - Product substitution issue [None]
  - Poor quality sleep [Recovered/Resolved]
  - Restlessness [Recovered/Resolved]
  - Screaming [Recovered/Resolved]
  - Crying [Recovered/Resolved]
  - Reaction to food additive [None]

NARRATIVE: CASE EVENT DATE: 20171118
